FAERS Safety Report 8956365 (Version 1)
Quarter: 2012Q4

REPORT INFORMATION
  Report Type: 
  Country: JP (occurrence: JP)
  Receive Date: 20121210
  Receipt Date: 20121210
  Transmission Date: 20130627
  Serious: Yes (Hospitalization)
  Sender: FDA-Public Use
  Company Number: JP-NOVOPROD-364354

PATIENT
  Age: 91 Year
  Sex: Male
  Weight: 48 kg

DRUGS (4)
  1. NOVORAPID [Suspect]
     Indication: TYPE 2 DIABETES MELLITUS
     Dosage: Unk
     Route: 058
  2. NOVORAPID [Suspect]
     Dosage: 58 IU, qd
     Route: 058
  3. LANTUS [Suspect]
     Indication: TYPE 2 DIABETES MELLITUS
     Dosage: Unk
     Route: 058
     Dates: start: 2008
  4. LANTUS [Suspect]
     Dosage: 3 U, qd
     Route: 058

REACTIONS (2)
  - Cutaneous amyloidosis [Recovered/Resolved]
  - Diabetes mellitus inadequate control [Recovered/Resolved]
